FAERS Safety Report 4533122-5 (Version None)
Quarter: 2004Q4

REPORT INFORMATION
  Report Type: 
  Country: None (occurrence: None)
  Receive Date: 20041210
  Receipt Date: 20040927
  Transmission Date: 20050328
  Serious: No
  Sender: FDA-Public Use
  Company Number: 2004-00573

PATIENT
  Sex: Male
  Weight: 87.5 kg

DRUGS (7)
  1. VELCADE [Suspect]
     Indication: MANTLE CELL LYMPHOMA STAGE III
     Dosage: 2.60 MG IV BOLUS
     Route: 040
     Dates: start: 20040628
  2. LOPRESSOR [Concomitant]
  3. PRAVACHOL (PRAVASTAIN SODIUM) [Concomitant]
  4. WARFARIN SODIUM [Concomitant]
  5. HYTRIN [Concomitant]
  6. POTASSIUM (POTASSIUM) [Concomitant]
  7. STRESSTABS (VITAMINS NOS) [Concomitant]

REACTIONS (5)
  - CONSTIPATION [None]
  - DIARRHOEA [None]
  - NAUSEA [None]
  - NEUROPATHY [None]
  - PLATELET COUNT DECREASED [None]
